FAERS Safety Report 5154506-0 (Version None)
Quarter: 2006Q4

REPORT INFORMATION
  Report Type: 
  Country: None (occurrence: None)
  Receive Date: 20061114
  Receipt Date: 20061102
  Transmission Date: 20070319
  Serious: Yes (Hospitalization)
  Sender: FDA-Public Use
  Company Number: 2006121162

PATIENT
  Age: 65 Year
  Sex: Male

DRUGS (3)
  1. LIPITOR [Suspect]
     Dosage: 1- ,G ( 1 IN 1 D), ORAL
     Route: 048
     Dates: start: 20060715, end: 20060912
  2. LANSOPRAZOLE [Concomitant]
  3. GASLON (IRSOGLADINE MALEATE) [Concomitant]

REACTIONS (5)
  - ALCOHOL USE [None]
  - DEPRESSED LEVEL OF CONSCIOUSNESS [None]
  - MALAISE [None]
  - RENAL FAILURE ACUTE [None]
  - RHABDOMYOLYSIS [None]
